FAERS Safety Report 7518591-0 (Version None)
Quarter: 2011Q2

REPORT INFORMATION
  Report Type: 
  Country: None (occurrence: None)
  Receive Date: 20110602
  Receipt Date: 20110523
  Transmission Date: 20111010
  Serious: Yes (Hospitalization, Other)
  Sender: FDA-Public Use
  Company Number: US-PFIZER INC-2011117569

PATIENT
  Age: 62 Year
  Sex: Female

DRUGS (4)
  1. ONDANSETRON [Suspect]
     Dosage: UNK
  2. SUXAMETHONIUM [Suspect]
  3. NORTRIPTYLINE HCL [Suspect]
     Dosage: 25 MG, UNK
  4. ESCITALOPRAM [Suspect]

REACTIONS (4)
  - VENTRICULAR TACHYCARDIA [None]
  - LONG QT SYNDROME [None]
  - SINUS BRADYCARDIA [None]
  - CARDIAC ARREST [None]
